FAERS Safety Report 17303975 (Version 1)
Quarter: 2020Q1

REPORT INFORMATION
  Report Type: Report from Study
  Country: TW (occurrence: TW)
  Receive Date: 20200122
  Receipt Date: 20200122
  Transmission Date: 20200409
  Serious: Yes (Hospitalization, Other)
  Sender: FDA-Public Use
  Company Number: TW-TAKEDA-2020TUS003720

PATIENT
  Age: 56 Year
  Sex: Male

DRUGS (26)
  1. BORTEZOMIB. [Suspect]
     Active Substance: BORTEZOMIB
     Dosage: 3.5 MILLIGRAM
     Route: 058
     Dates: start: 20170905, end: 20170905
  2. BORTEZOMIB. [Suspect]
     Active Substance: BORTEZOMIB
     Dosage: 3 MILLIGRAM, QD
     Route: 058
     Dates: start: 20171031
  3. FYTOSID [Concomitant]
     Active Substance: ETOPOSIDE
     Dosage: 5 MILLILITER
     Route: 065
     Dates: start: 20170831
  4. FYTOSID [Concomitant]
     Active Substance: ETOPOSIDE
     Dosage: 5 MILLILITER
     Route: 065
     Dates: start: 20170922
  5. BORTEZOMIB. [Suspect]
     Active Substance: BORTEZOMIB
     Dosage: 3 MILLIGRAM, QD
     Route: 058
     Dates: start: 20170929
  6. BORTEZOMIB. [Suspect]
     Active Substance: BORTEZOMIB
     Dosage: 3 MILLIGRAM, QD
     Route: 058
     Dates: start: 20171017, end: 20171017
  7. BORTEZOMIB. [Suspect]
     Active Substance: BORTEZOMIB
     Dosage: 3 MILLIGRAM, QD
     Route: 058
     Dates: start: 20171114
  8. VINCRISTINE SULFATE. [Concomitant]
     Active Substance: VINCRISTINE SULFATE
     Dosage: 1 MILLIGRAM
     Route: 065
     Dates: start: 20170922
  9. VINCRISTINE SULFATE. [Concomitant]
     Active Substance: VINCRISTINE SULFATE
     Dosage: 1 MILLIGRAM
     Route: 065
     Dates: start: 20171017, end: 20171017
  10. BORTEZOMIB. [Suspect]
     Active Substance: BORTEZOMIB
     Indication: MANTLE CELL LYMPHOMA
     Dosage: 3 MILLIGRAM
     Route: 058
     Dates: start: 20170830, end: 20180530
  11. BORTEZOMIB. [Suspect]
     Active Substance: BORTEZOMIB
     Dosage: 3 MILLIGRAM, QD
     Route: 058
     Dates: start: 20171006
  12. BORTEZOMIB. [Suspect]
     Active Substance: BORTEZOMIB
     Dosage: 3 MILLIGRAM, QD
     Route: 058
     Dates: start: 20180423, end: 20180423
  13. ENDOXAN                            /00021101/ [Concomitant]
     Active Substance: CYCLOPHOSPHAMIDE
     Dosage: 200 MILLIGRAM
     Route: 065
     Dates: start: 20170831
  14. ENDOXAN                            /00021101/ [Concomitant]
     Active Substance: CYCLOPHOSPHAMIDE
     Dosage: 200 MILLIGRAM
     Route: 065
     Dates: start: 20170822
  15. BORTEZOMIB. [Suspect]
     Active Substance: BORTEZOMIB
     Dosage: 3 MILLIGRAM
     Route: 058
     Dates: start: 20170912
  16. BORTEZOMIB. [Suspect]
     Active Substance: BORTEZOMIB
     Dosage: 3 MILLIGRAM, QD
     Route: 058
     Dates: start: 20171107
  17. BORTEZOMIB. [Suspect]
     Active Substance: BORTEZOMIB
     Dosage: 3 MILLIGRAM, QD
     Route: 058
     Dates: start: 20171225, end: 20171225
  18. IBRUTINIB [Suspect]
     Active Substance: IBRUTINIB
     Indication: MANTLE CELL LYMPHOMA
     Dosage: 560 MILLIGRAM, QD
     Route: 048
     Dates: start: 20181126
  19. BORTEZOMIB. [Suspect]
     Active Substance: BORTEZOMIB
     Dosage: 3 MILLIGRAM, QD
     Route: 058
     Dates: start: 20171024
  20. BORTEZOMIB. [Suspect]
     Active Substance: BORTEZOMIB
     Dosage: 3 MILLIGRAM, QD
     Route: 058
     Dates: start: 20171121
  21. BORTEZOMIB. [Suspect]
     Active Substance: BORTEZOMIB
     Dosage: 3 MILLIGRAM, QD
     Route: 058
     Dates: start: 20171208
  22. BORTEZOMIB. [Suspect]
     Active Substance: BORTEZOMIB
     Dosage: 3 MILLIGRAM, QD
     Route: 058
     Dates: start: 20171201, end: 20171201
  23. BORTEZOMIB. [Suspect]
     Active Substance: BORTEZOMIB
     Dosage: 3 MILLIGRAM, QD
     Route: 058
     Dates: start: 20180530, end: 20191220
  24. VINCRISTINE SULFATE. [Concomitant]
     Active Substance: VINCRISTINE SULFATE
     Dosage: 1 MILLIGRAM
     Route: 065
     Dates: start: 20170831
  25. BORTEZOMIB. [Suspect]
     Active Substance: BORTEZOMIB
     Dosage: 3 MILLIGRAM, QD
     Route: 058
     Dates: start: 20170922, end: 20170922
  26. FYTOSID [Concomitant]
     Active Substance: ETOPOSIDE
     Dosage: 5 MILLILITER
     Route: 065
     Dates: start: 20171017, end: 20171017

REACTIONS (7)
  - Hypoaesthesia [Not Recovered/Not Resolved]
  - Tenderness [Recovered/Resolved]
  - Cough [Recovered/Resolved]
  - Tinnitus [Not Recovered/Not Resolved]
  - Constipation [Not Recovered/Not Resolved]
  - Stomatitis [Not Recovered/Not Resolved]
  - Seizure [Not Recovered/Not Resolved]

NARRATIVE: CASE EVENT DATE: 201810
